FAERS Safety Report 7395857-9 (Version None)
Quarter: 2011Q2

REPORT INFORMATION
  Report Type: 
  Country: None (occurrence: None)
  Receive Date: 20110405
  Receipt Date: 20110309
  Transmission Date: 20111010
  Serious: No
  Sender: FDA-Public Use
  Company Number: US-BAYER-2011-023365

PATIENT
  Sex: Male
  Weight: 104.31 kg

DRUGS (1)
  1. ALEVE (CAPLET) [Suspect]
     Indication: HEADACHE
     Dosage: 440 MG, ONCE
     Route: 048
     Dates: start: 20110309

REACTIONS (4)
  - PARAESTHESIA [None]
  - HYPERTENSION [None]
  - FEELING HOT [None]
  - DYSPNOEA [None]
